FAERS Safety Report 7033099-7 (Version None)
Quarter: 2010Q4

REPORT INFORMATION
  Report Type: 
  Country: None (occurrence: None)
  Receive Date: 20101005
  Receipt Date: 20100920
  Transmission Date: 20110411
  Serious: Yes (Death)
  Sender: FDA-Public Use
  Company Number: JP-ACCORD-005523

PATIENT
  Age: 13 Year
  Sex: Female

DRUGS (3)
  1. ETOPOSIDE [Suspect]
     Indication: CHEMOTHERAPY
     Dosage: 60.00-MG/M2
  2. CISPLATIN [Suspect]
     Indication: CHEMOTHERAPY
     Dosage: 20.00-MG/M2
  3. IFOSFAMIDE [Suspect]
     Indication: CHEMOTHERAPY
     Dosage: 900.00-NG/M2

REACTIONS (3)
  - CHOROID PLEXUS CARCINOMA [None]
  - NEOPLASM RECURRENCE [None]
  - YOLK SAC TUMOUR SITE UNSPECIFIED [None]
